FAERS Safety Report 8798062 (Version 2)
Quarter: 2013Q1

REPORT INFORMATION
  Report Type: Spontaneous
  Country: US (occurrence: US)
  Receive Date: 20120920
  Receipt Date: 20130129
  Transmission Date: 20140127
  Serious: Yes (Hospitalization)
  Sender: FDA-Public Use
  Company Number: US-AMGEN-USASP2012058311

PATIENT
  Age: 58 Year
  Sex: Male

DRUGS (1)
  1. ENBREL [Suspect]
     Indication: PSORIATIC ARTHROPATHY
     Dosage: 50 MG, QWK
     Route: 058
     Dates: start: 20021215

REACTIONS (8)
  - Hip fracture [Recovered/Resolved]
  - Fall [Recovered/Resolved]
  - Pneumonia [Recovered/Resolved]
  - Osteoporosis [Not Recovered/Not Resolved]
  - Compression fracture [Not Recovered/Not Resolved]
  - Device dislocation [Not Recovered/Not Resolved]
  - Weight decreased [Recovered/Resolved]
  - Psoriatic arthropathy [Not Recovered/Not Resolved]
